FAERS Safety Report 5508516-1 (Version None)
Quarter: 2007Q4

REPORT INFORMATION
  Report Type: 
  Country: None (occurrence: None)
  Receive Date: 20071105
  Receipt Date: 20071022
  Transmission Date: 20080405
  Serious: Yes (Hospitalization)
  Sender: FDA-Public Use
  Company Number: 2007SP020014

PATIENT
  Age: 49 Year
  Sex: Female
  Weight: 86.637 kg

DRUGS (2)
  1. PEG-INTRON [Suspect]
     Indication: HEPATITIS C
     Dosage: 150 MCG; QW; SC
     Route: 058
     Dates: start: 20070201, end: 20070605
  2. REBETOL [Suspect]
     Indication: HEPATITIS C
     Dosage: 1200 MG; QD; PO
     Route: 048
     Dates: start: 20070201, end: 20070605

REACTIONS (3)
  - HAEMOLYTIC ANAEMIA [None]
  - HYPERBILIRUBINAEMIA [None]
  - JAUNDICE [None]
